FAERS Safety Report 13033540 (Version 1)
Quarter: 2016Q4

REPORT INFORMATION
  Report Type: Report from Study
  Country: None (occurrence: US)
  Receive Date: 20161216
  Receipt Date: 20161216
  Transmission Date: 20170207
  Serious: Yes (Other)
  Sender: FDA-Public Use
  Company Number: US-ABBVIE-16K-163-1739294-00

PATIENT
  Age: 54 Year
  Sex: Female

DRUGS (8)
  1. DIALYVITE VITAMIN D [Concomitant]
     Indication: PRODUCT USED FOR UNKNOWN INDICATION
  2. ONDANSETRON [Concomitant]
     Active Substance: ONDANSETRON
     Indication: NAUSEA
     Dosage: 5 REFILLS, ORAL DISSOLVING TABLET, 3 TIMES A DAY
  3. MERCAPTOPURINE. [Concomitant]
     Active Substance: MERCAPTOPURINE
     Indication: PRODUCT USED FOR UNKNOWN INDICATION
     Dosage: 3 REFILLS
  4. LIALDA [Concomitant]
     Active Substance: MESALAMINE
     Indication: PRODUCT USED FOR UNKNOWN INDICATION
     Dosage: 3 REFILLS
  5. HUMIRA [Suspect]
     Active Substance: ADALIMUMAB
     Route: 058
     Dates: start: 20160906
  6. GABAPENTIN. [Concomitant]
     Active Substance: GABAPENTIN
     Indication: PRODUCT USED FOR UNKNOWN INDICATION
  7. HUMIRA [Suspect]
     Active Substance: ADALIMUMAB
     Indication: COLITIS ULCERATIVE
     Route: 058
     Dates: start: 20140326, end: 20160805
  8. TRAMADOL HCL [Concomitant]
     Active Substance: TRAMADOL HYDROCHLORIDE
     Indication: PRODUCT USED FOR UNKNOWN INDICATION

REACTIONS (22)
  - Inflammatory bowel disease [Unknown]
  - Cataract [Unknown]
  - Vitamin D deficiency [Unknown]
  - Blood cholesterol increased [Unknown]
  - White blood cell disorder [Unknown]
  - Culture urine positive [Unknown]
  - Iritis [Recovering/Resolving]
  - Blood sodium increased [Not Recovered/Not Resolved]
  - Blood creatinine increased [Unknown]
  - Gastrooesophageal reflux disease [Recovered/Resolved]
  - Mean cell volume increased [Not Recovered/Not Resolved]
  - Mean cell haemoglobin concentration decreased [Unknown]
  - Lymphocyte count increased [Unknown]
  - Blood chloride increased [Unknown]
  - Post herpetic neuralgia [Unknown]
  - Respiratory rate decreased [Unknown]
  - Low density lipoprotein increased [Unknown]
  - Blood alkaline phosphatase increased [Unknown]
  - Colitis [Unknown]
  - Red blood cell count decreased [Recovering/Resolving]
  - Osteoarthritis [Unknown]
  - Weight increased [Unknown]

NARRATIVE: CASE EVENT DATE: 20150702
